FAERS Safety Report 8245361-0 (Version None)
Quarter: 2012Q1

REPORT INFORMATION
  Report Type: 
  Country: None (occurrence: None)
  Receive Date: 20120329
  Receipt Date: 20120319
  Transmission Date: 20120608
  Serious: Yes (Hospitalization)
  Sender: FDA-Public Use
  Company Number: US-ALLERGAN-1203963US

PATIENT
  Age: 79 Year
  Sex: Female

DRUGS (5)
  1. JUVEDERM [Suspect]
     Indication: SKIN WRINKLING
     Dosage: UNK
     Dates: start: 20111101, end: 20111101
  2. BOTOX COSMETIC [Suspect]
  3. BOTOX COSMETIC [Suspect]
     Indication: SKIN WRINKLING
     Dosage: UNK
     Route: 030
     Dates: start: 20111001, end: 20111001
  4. UNSPECIFIED BLOOD PRESSURE MEDICATION [Concomitant]
  5. UNSPECIFIED CHOLESTEROL MEDICATION [Concomitant]

REACTIONS (2)
  - LOSS OF CONSCIOUSNESS [None]
  - CONVULSION [None]
